FAERS Safety Report 12610413 (Version 1)
Quarter: 2016Q3

REPORT INFORMATION
  Report Type: Report from Study
  Country: GB (occurrence: GB)
  Receive Date: 20160801
  Receipt Date: 20160801
  Transmission Date: 20161109
  Serious: Yes (Death, Hospitalization, Other)
  Sender: FDA-Public Use
  Company Number: GB-ASTELLAS-2009000153

PATIENT
  Age: 78 Year
  Sex: Male

DRUGS (1)
  1. ERLOTINIB [Suspect]
     Active Substance: ERLOTINIB
     Indication: NON-SMALL CELL LUNG CANCER
     Route: 048
     Dates: start: 20080523, end: 20081220

REACTIONS (3)
  - Non-small cell lung cancer [Fatal]
  - Lower respiratory tract infection [Fatal]
  - Diarrhoea [Fatal]

NARRATIVE: CASE EVENT DATE: 20081218
